FAERS Safety Report 4394208-1 (Version None)
Quarter: 2004Q3

REPORT INFORMATION
  Report Type: 
  Country: None (occurrence: None)
  Receive Date: 20040706
  Receipt Date: 20040624
  Transmission Date: 20050211
  Serious: Yes (Other)
  Sender: FDA-Public Use
  Company Number: 2004042423

PATIENT
  Age: 51 Year
  Sex: Female
  Weight: 93.8946 kg

DRUGS (5)
  1. NICOTROL [Suspect]
     Indication: SMOKING CESSATION THERAPY
     Dosage: THROUGH THE DAY INHALATION
     Route: 055
     Dates: start: 19920101
  2. NICORETTE [Suspect]
     Indication: SMOKING CESSATION THERAPY
     Dosage: THROUGH THE DAY, ORAL
     Route: 048
     Dates: start: 19920101
  3. NICOTINE [Suspect]
     Indication: SMOKING CESSATION THERAPY
     Dosage: THROUGH THE DAY
     Dates: start: 19920101
  4. CONJUGATED ESTROGENS [Concomitant]
  5. ACETYULSALICYLIC ACID (ACETYLSALICYLIC ACID) [Concomitant]

REACTIONS (1)
  - INTRACRANIAL ANEURYSM [None]
